FAERS Safety Report 21518864 (Version 1)
Quarter: 2022Q4

REPORT INFORMATION
  Report Type: Spontaneous
  Country: CN (occurrence: None)
  Receive Date: 20221028
  Receipt Date: 20221028
  Transmission Date: 20230113
  Serious: Yes (Other)
  Sender: FDA-Public Use
  Company Number: CN-ROCHE-3208177

PATIENT
  Age: 59 Year
  Sex: Female
  Weight: 60 kg

DRUGS (1)
  1. GAZYVA [Suspect]
     Active Substance: OBINUTUZUMAB
     Indication: B-cell lymphoma
     Route: 042
     Dates: start: 20220813, end: 20220813

REACTIONS (4)
  - Pyrexia [Recovered/Resolved]
  - Chills [Recovered/Resolved]
  - Dyspnoea [Recovered/Resolved]
  - Off label use [Unknown]

NARRATIVE: CASE EVENT DATE: 20220813
